FAERS Safety Report 5412924-7 (Version None)
Quarter: 2007Q3

REPORT INFORMATION
  Report Type: 
  Country: None (occurrence: None)
  Receive Date: 20070809
  Receipt Date: 20070726
  Transmission Date: 20080115
  Serious: Yes (Death)
  Sender: FDA-Public Use
  Company Number: PAR_01664_2007

PATIENT
  Age: 19 Year
  Sex: Male

DRUGS (6)
  1. IBUPROFEN [Suspect]
     Indication: DRUG USE FOR UNKNOWN INDICATION
     Dosage: (DF ORAL)
     Route: 048
  2. CYCLOBENZAPRINE [Suspect]
     Indication: DRUG USE FOR UNKNOWN INDICATION
     Dosage: (DF)
  3. PHENYLPROPANOLAMINE (PHENYLPROPRANOLAMINE) [Suspect]
     Indication: DRUG USE FOR UNKNOWN INDICATION
     Dosage: (DF)
  4. CHLORPHENIRAMINE /00072501/ (CHLORPHENIRAMINE) [Suspect]
     Indication: DRUG USE FOR UNKNOWN INDICATION
     Dosage: (DF)
  5. PHENYTOIN [Concomitant]
  6. LIGNOCAINE /00033401/ [Concomitant]

REACTIONS (9)
  - ARRHYTHMIA [None]
  - COMPLETED SUICIDE [None]
  - DRUG TOXICITY [None]
  - INTENTIONAL SELF-INJURY [None]
  - LETHARGY [None]
  - METABOLIC ACIDOSIS [None]
  - MULTIPLE DRUG OVERDOSE [None]
  - SKIN LACERATION [None]
  - TACHYCARDIA [None]
